FAERS Safety Report 8084232-X (Version None)
Quarter: 2012Q1

REPORT INFORMATION
  Report Type: 
  Country: None (occurrence: None)
  Receive Date: 20120128
  Receipt Date: 20110307
  Transmission Date: 20120608
  Serious: No
  Sender: FDA-Public Use
  Company Number: US-ABBOTT-11P-163-0709646-00

PATIENT
  Age: 37 Year
  Sex: Male

DRUGS (2)
  1. UNKNOWN OINTMENT [Concomitant]
     Indication: PSORIASIS
     Dosage: BID OR TID
  2. HUMIRA [Suspect]
     Indication: PSORIASIS

REACTIONS (2)
  - RASH PAPULAR [None]
  - PSORIASIS [None]
